FAERS Safety Report 5950640-3 (Version None)
Quarter: 2008Q4

REPORT INFORMATION
  Report Type: 
  Country: None (occurrence: None)
  Receive Date: 20081112
  Receipt Date: 20081103
  Transmission Date: 20090506
  Serious: Yes (Other)
  Sender: FDA-Public Use
  Company Number: US-AVENTIS-200817582US

PATIENT
  Sex: Male

DRUGS (1)
  1. KETEK [Suspect]
     Dates: start: 20041015

REACTIONS (4)
  - ABDOMINAL PAIN UPPER [None]
  - FATIGUE [None]
  - HEPATIC ENZYME INCREASED [None]
  - HEPATITIS [None]
